FAERS Safety Report 6442942-1 (Version None)
Quarter: 2009Q4

REPORT INFORMATION
  Report Type: 
  Country: None (occurrence: None)
  Receive Date: 20091113
  Receipt Date: 20091110
  Transmission Date: 20100525
  Serious: Yes (Hospitalization)
  Sender: FDA-Public Use
  Company Number: SPV1-2009-01647

PATIENT
  Age: 58 Year
  Sex: Male
  Weight: 80 kg

DRUGS (14)
  1. FOSRENOL [Suspect]
     Indication: HYPERPHOSPHATAEMIA
     Dosage: 1500 MG, 3X/DAY, TID, ORAL, 750 MG, ORAL
     Route: 048
     Dates: start: 20090124
  2. FOSRENOL [Suspect]
     Indication: HYPERPHOSPHATAEMIA
     Dosage: 1500 MG, 3X/DAY, TID, ORAL, 750 MG, ORAL
     Route: 048
     Dates: start: 20090124
  3. RENAGEL [Concomitant]
  4. ASPIRIN [Concomitant]
  5. BUMEX [Concomitant]
  6. CARDURA [Concomitant]
  7. CATAPRES [Concomitant]
  8. FERROUS SULFATE TAB [Concomitant]
  9. HYDRALAZINE HCL [Concomitant]
  10. INSULIN (INSULIN) [Concomitant]
  11. LEXAPRO [Concomitant]
  12. LISINOPRIL [Concomitant]
  13. NEPHROVITE (ASCORBIC ACID, BIOTIN, CALCIUM PANTOTHENATE, CYANOCOBALAMI [Concomitant]
  14. NORVASC [Concomitant]

REACTIONS (6)
  - CARDIAC MURMUR [None]
  - CONDITION AGGRAVATED [None]
  - CORONARY ARTERY OCCLUSION [None]
  - CORONARY ARTERY THROMBOSIS [None]
  - INFECTION [None]
  - INTESTINAL OBSTRUCTION [None]
